FAERS Safety Report 6986159-0 (Version None)
Quarter: 2010Q3

REPORT INFORMATION
  Report Type: 
  Country: None (occurrence: None)
  Receive Date: 20100915
  Receipt Date: 20090603
  Transmission Date: 20110219
  Serious: No
  Sender: FDA-Public Use
  Company Number: US-WYE-H09602509

PATIENT
  Sex: Female
  Weight: 65.83 kg

DRUGS (1)
  1. PRISTIQ [Suspect]
     Indication: DEPRESSION
     Route: 048
     Dates: start: 20090602

REACTIONS (4)
  - DIZZINESS [None]
  - DRY MOUTH [None]
  - HUNGER [None]
  - NAUSEA [None]
